FAERS Safety Report 10973403 (Version 1)
Quarter: 2015Q2

REPORT INFORMATION
  Report Type: Spontaneous
  Country: US (occurrence: US)
  Receive Date: 20150401
  Receipt Date: 20150401
  Transmission Date: 20150821
  Serious: Yes (Other)
  Sender: FDA-Public Use
  Company Number: US-ASTRAZENECA-2015SE29295

PATIENT
  Age: 61 Year
  Sex: Female
  Weight: 59.9 kg

DRUGS (21)
  1. NEXIUM [Suspect]
     Active Substance: ESOMEPRAZOLE MAGNESIUM
     Indication: DYSPEPSIA
     Route: 048
     Dates: start: 2010, end: 201411
  2. PREAVISION A READS [Concomitant]
     Indication: EYE DISORDER
     Dosage: 3 TIMES A DAY
     Route: 048
     Dates: start: 2012
  3. CALCIUM PLUS D [Concomitant]
     Active Substance: CALCIUM\VITAMIN D
     Dosage: 630 MG 500 IU
     Route: 048
  4. NEXIUM [Suspect]
     Active Substance: ESOMEPRAZOLE MAGNESIUM
     Indication: GASTROOESOPHAGEAL REFLUX DISEASE
     Route: 048
     Dates: start: 2010, end: 201411
  5. VITAMIN B12 [Concomitant]
     Active Substance: CYANOCOBALAMIN
     Route: 048
  6. NEXIUM [Suspect]
     Active Substance: ESOMEPRAZOLE MAGNESIUM
     Indication: GASTROOESOPHAGEAL REFLUX DISEASE
     Route: 048
     Dates: start: 201501
  7. NEXIUM [Suspect]
     Active Substance: ESOMEPRAZOLE MAGNESIUM
     Indication: GASTROOESOPHAGEAL REFLUX DISEASE
     Route: 048
     Dates: start: 201411, end: 201501
  8. NEXIUM [Suspect]
     Active Substance: ESOMEPRAZOLE MAGNESIUM
     Indication: DYSPEPSIA
     Route: 048
     Dates: start: 201411, end: 201501
  9. PRILOSEC OTC [Suspect]
     Active Substance: OMEPRAZOLE MAGNESIUM
     Indication: GASTROOESOPHAGEAL REFLUX DISEASE
     Dosage: DAILY
     Route: 048
     Dates: start: 2001, end: 2010
  10. D PLUS D3 [Concomitant]
     Route: 048
  11. LIOTHYRONINE [Concomitant]
     Active Substance: LIOTHYRONINE
     Indication: THYROID DISORDER
     Route: 048
  12. POTASSIUM [Concomitant]
     Active Substance: POTASSIUM
     Route: 048
  13. PRILOSEC OTC [Suspect]
     Active Substance: OMEPRAZOLE MAGNESIUM
     Indication: DYSPEPSIA
     Dosage: DAILY
     Route: 048
     Dates: start: 2001, end: 2010
  14. EQUATE ANTACID [Concomitant]
     Active Substance: CALCIUM CARBONATE
     Indication: ABDOMINAL DISCOMFORT
     Dosage: 1 TABLESPOON, INTERMITTENTLY
     Route: 048
  15. LEVOTHYROXINE [Concomitant]
     Active Substance: LEVOTHYROXINE
     Indication: THYROID DISORDER
     Route: 048
  16. VITAMIN C [Concomitant]
     Active Substance: ASCORBIC ACID
     Route: 048
  17. FISH OIL [Concomitant]
     Active Substance: FISH OIL
     Route: 048
     Dates: start: 2014
  18. GLUCOSAMINE [Concomitant]
     Active Substance: GLUCOSAMINE
     Route: 048
  19. NEXIUM [Suspect]
     Active Substance: ESOMEPRAZOLE MAGNESIUM
     Indication: DYSPEPSIA
     Route: 048
     Dates: start: 201501
  20. TRIAMT HCTZ [Concomitant]
     Indication: DIURETIC THERAPY
     Dosage: 37.5-25, DAILY
     Route: 048
  21. RED RYE YEAST RICE [Concomitant]
     Indication: BLOOD CHOLESTEROL ABNORMAL
     Route: 048

REACTIONS (7)
  - Onychoclasis [Unknown]
  - Product use issue [Unknown]
  - Macular degeneration [Unknown]
  - Fatigue [Unknown]
  - Heart rate increased [Unknown]
  - Blood pressure increased [Unknown]
  - Abdominal discomfort [Unknown]

NARRATIVE: CASE EVENT DATE: 2001
